FAERS Safety Report 6608241-X (Version None)
Quarter: 2010Q1

REPORT INFORMATION
  Report Type: 
  Country: None (occurrence: None)
  Receive Date: 20100223
  Receipt Date: 20100208
  Transmission Date: 20100710
  Serious: Yes (Death)
  Sender: FDA-Public Use
  Company Number: 2010-021

PATIENT
  Age: 51 Year
  Sex: Female

DRUGS (11)
  1. FAZACLO ODT [Suspect]
     Dosage: 400 MG - 50 MG DAILY PO
     Route: 048
     Dates: start: 20080528, end: 20100205
  2. DUO-NEBULIZER [Concomitant]
  3. DULCOLAX [Concomitant]
  4. ^MYOCELSIN^ [Concomitant]
  5. HEPARIN [Concomitant]
  6. POTASSIUM [Concomitant]
  7. LASIX [Concomitant]
  8. HALDOL [Concomitant]
  9. DILAUDID [Concomitant]
  10. ATIVAN [Concomitant]
  11. AVELOX [Concomitant]

REACTIONS (1)
  - HOSPITALISATION [None]
